FAERS Safety Report 5045214-5 (Version None)
Quarter: 2006Q3

REPORT INFORMATION
  Report Type: 
  Country: None (occurrence: None)
  Receive Date: 20060707
  Receipt Date: 20060627
  Transmission Date: 20061208
  Serious: Yes (Hospitalization)
  Sender: FDA-Public Use
  Company Number: JP-JPN-A200602299

PATIENT
  Age: 60 Year
  Sex: Male

DRUGS (11)
  1. VALTREX [Suspect]
     Indication: HERPES ZOSTER
     Dosage: 1000MG THREE TIMES PER DAY
     Route: 048
     Dates: start: 20060619, end: 20060620
  2. DEPAKENE [Concomitant]
     Route: 048
  3. THEO-DUR [Concomitant]
     Route: 048
  4. MEVALOTIN [Concomitant]
     Route: 048
  5. GAISAL [Concomitant]
     Route: 048
  6. MUCOSTA [Concomitant]
     Route: 048
  7. CLEANAL [Concomitant]
     Route: 048
  8. GASRICK [Concomitant]
     Route: 048
  9. DIATALIC [Concomitant]
     Route: 048
  10. AMLODIN [Concomitant]
     Route: 048
  11. NARCARICIN [Concomitant]
     Route: 048

REACTIONS (1)
  - TOXIC SKIN ERUPTION [None]
